FAERS Safety Report 7312451-6 (Version None)
Quarter: 2011Q1

REPORT INFORMATION
  Report Type: 
  Country: None (occurrence: None)
  Receive Date: 20110224
  Receipt Date: 20110118
  Transmission Date: 20110831
  Serious: Yes (Other)
  Sender: FDA-Public Use
  Company Number: -MYLANLABS-2011S1001162

PATIENT
  Age: 32 Year
  Sex: Male

DRUGS (2)
  1. OXCARBAZEPINE [Concomitant]
  2. LEVETIRACETAM [Suspect]
     Indication: CONVULSION

REACTIONS (1)
  - GRAND MAL CONVULSION [None]
